FAERS Safety Report 25036581 (Version 1)
Quarter: 2025Q1

REPORT INFORMATION
  Report Type: Spontaneous
  Country: US (occurrence: US)
  Receive Date: 20250304
  Receipt Date: 20250304
  Transmission Date: 20250409
  Serious: Yes (Other)
  Sender: BRACCO
  Company Number: US-BRACCO-2025US00874

PATIENT
  Age: 32 Year
  Sex: Female

DRUGS (1)
  1. VUEWAY [Suspect]
     Active Substance: GADOPICLENOL
     Indication: Magnetic resonance imaging head
     Route: 042
     Dates: start: 20241227, end: 20241227

REACTIONS (2)
  - Pharyngeal paraesthesia [Unknown]
  - Throat irritation [Unknown]

NARRATIVE: CASE EVENT DATE: 20241227
